FAERS Safety Report 6927380-7 (Version None)
Quarter: 2010Q3

REPORT INFORMATION
  Report Type: 
  Country: None (occurrence: None)
  Receive Date: 20100817
  Receipt Date: 20100810
  Transmission Date: 20110219
  Serious: No
  Sender: FDA-Public Use
  Company Number: US-BIOGENIDEC-2010BI027970

PATIENT
  Age: 50 Year
  Sex: Female

DRUGS (1)
  1. TYSABRI [Suspect]
     Indication: MULTIPLE SCLEROSIS
     Route: 042
     Dates: start: 20080410

REACTIONS (9)
  - APHASIA [None]
  - ARTHRALGIA [None]
  - COGNITIVE DISORDER [None]
  - DYSPHAGIA [None]
  - JOINT DISLOCATION [None]
  - OESOPHAGEAL STENOSIS [None]
  - PAIN IN EXTREMITY [None]
  - SPEECH DISORDER [None]
  - VOMITING [None]
